FAERS Safety Report 12357561 (Version 2)
Quarter: 2018Q4

REPORT INFORMATION
  Report Type: Report from Study
  Country: CN (occurrence: CN)
  Receive Date: 20160512
  Receipt Date: 20181001
  Transmission Date: 20190204
  Serious: Yes (Other)
  Sender: FDA-Public Use
  Company Number: CN-ROCHE-1754003

PATIENT

DRUGS (2)
  1. CAPECITABINE. [Suspect]
     Active Substance: CAPECITABINE
     Indication: GASTRIC CANCER
     Dosage: DOSE: 2.0 G/M2 AND THE TOTAL DAILY DOSE WAS TAKEN IN TWO SUB-DOSES HALF AN HOUR AFTER MEALS IN THE M
     Route: 048
  2. OXALIPLATIN. [Suspect]
     Active Substance: OXALIPLATIN
     Indication: GASTRIC CANCER
     Dosage: FOR 2 HOURS ON DAY 1 OF 14 DAY COURSE; REPEATED EVERY 3 WEEKS
     Route: 042

REACTIONS (6)
  - Mucosal inflammation [Recovering/Resolving]
  - Neutrophil count decreased [Recovering/Resolving]
  - White blood cell count decreased [Recovering/Resolving]
  - Haemoglobin decreased [Recovering/Resolving]
  - Hepatic function abnormal [Recovering/Resolving]
  - Gastrointestinal disorder [Recovering/Resolving]
